FAERS Safety Report 6141923-5 (Version None)
Quarter: 2009Q1

REPORT INFORMATION
  Report Type: 
  Country: None (occurrence: None)
  Receive Date: 20090331
  Receipt Date: 20081210
  Transmission Date: 20090719
  Serious: Yes (Hospitalization)
  Sender: FDA-Public Use
  Company Number: 2008152857

PATIENT
  Age: 62 Year
  Sex: Female

DRUGS (27)
  1. FRAGMIN [Suspect]
     Indication: THROMBOSIS PROPHYLAXIS
     Dosage: SUBCUTANEOUS
     Route: 058
     Dates: start: 20060627
  2. DIFLUCAN [Suspect]
     Indication: SYSTEMIC CANDIDA
     Dosage: INTRAVENOUS
     Route: 042
     Dates: start: 20060701, end: 20060709
  3. NOVALGIN (METAMIZOLE SODIUM) ORAL DROPS [Suspect]
     Indication: PAIN
     Dosage: 20 GTT, ORAL
     Route: 048
     Dates: start: 20060619, end: 20060624
  4. NOVALGIN (METAMIZOLE SODIUM) ORAL DROPS [Suspect]
     Indication: PAIN
     Dosage: 20 GTT, ORAL
     Route: 048
     Dates: start: 20060702, end: 20060703
  5. NOVALGIN (METAMIZOLE SODIUM) ORAL DROPS [Suspect]
     Indication: PAIN
     Dosage: 20 GTT, ORAL
     Route: 048
     Dates: start: 20060705, end: 20060705
  6. LEVOFLOXACIN [Suspect]
     Indication: URINARY TRACT INFECTION
     Dosage: 500 MG, ORAL
     Route: 048
     Dates: start: 20060620, end: 20060706
  7. BISOPROLOL FUMARATE [Suspect]
     Indication: HYPERTENSION
     Dosage: 5 MG, 2X/DAY, ORAL
     Route: 048
     Dates: start: 20060621
  8. RAMIPRIL [Suspect]
     Indication: HYPERTENSION
     Dosage: 5 MG, 1X/DAY, ORAL
     Route: 048
     Dates: start: 20060621, end: 20060714
  9. RAMIPRIL [Suspect]
     Indication: HYPERTENSION
     Dosage: 5 MG, 1X/DAY, ORAL
     Route: 048
     Dates: start: 20060716
  10. SODIUM CHLORIDE [Suspect]
     Indication: ELECTROLYTE SUBSTITUTION THERAPY
     Dosage: 0.9%, 2000 ML
     Dates: start: 20060623, end: 20060705
  11. POTASSIUM CHLORIDE [Suspect]
     Indication: ELECTROLYTE SUBSTITUTION THERAPY
     Dosage: ORAL
     Route: 048
     Dates: start: 20060712
  12. KALINOR-BRAUSETABLETTEN(POTASSIUM CARBONATE, POTASSIUM CITRATE) EFFERV [Suspect]
     Indication: HYPOKALAEMIA
     Dosage: ORAL
     Route: 048
     Dates: start: 20060623, end: 20060630
  13. KALINOR-BRAUSETABLETTEN(POTASSIUM CARBONATE, POTASSIUM CITRATE) EFFERV [Suspect]
     Indication: HYPOKALAEMIA
     Dosage: ORAL
     Route: 048
     Dates: start: 20060706, end: 20060712
  14. ALT-INSULIN (FRUCTOSE, INSULIN ZINC SUSPENSION) [Suspect]
     Indication: DIABETES MELLITUS
     Dosage: 4 IU, 3X/DAY, SUBCUTANEOUS
     Route: 058
     Dates: start: 20060623
  15. FAVISTAN(THIAMAZOLE) [Suspect]
     Indication: HYPERTHYROIDISM
     Dosage: 20 MG, 1X/DAY, ORAL; 10 MG (1/2 OF 20MG), 1X/DAY, ORAL
     Route: 048
     Dates: start: 20060623, end: 20060714
  16. FAVISTAN(THIAMAZOLE) [Suspect]
     Indication: HYPERTHYROIDISM
     Dosage: 20 MG, 1X/DAY, ORAL; 10 MG (1/2 OF 20MG), 1X/DAY, ORAL
     Route: 048
     Dates: start: 20060716
  17. POTASSIUM CHLORIDE [Suspect]
     Indication: ELECTROLYTE SUBSTITUTION THERAPY
     Dosage: MMOL, 2X/DAY, INTRAVENOUS
     Route: 042
     Dates: start: 20060624, end: 20060705
  18. TRAMADOL HCL [Suspect]
     Indication: PAIN
     Dosage: 20 GTT, ORAL
     Route: 048
     Dates: start: 20060624, end: 20060627
  19. TRAMADOL HCL [Suspect]
     Indication: PAIN
     Dosage: 20 GTT, ORAL
     Route: 048
     Dates: start: 20060629
  20. ROCEPHIN [Suspect]
     Indication: PYONEPHROSIS
     Dosage: 2 G, 1X/DAY, INTRAVENOUS
     Route: 042
     Dates: start: 20060627, end: 20060630
  21. ROCEPHIN [Suspect]
     Indication: PYONEPHROSIS
     Dosage: 2 G, 1X/DAY, INTRAVENOUS
     Route: 042
     Dates: start: 20060711
  22. NOVALGIN (METAMIZOLE SODIUM) SOLUTION FOR INJECTION [Suspect]
     Indication: PYREXIA
     Dosage: 1 G, 1X/DAY, INTRAVENOUS; 0.5 G, 1X/DAY, INTRAVENOUS
     Route: 042
     Dates: start: 20060701, end: 20060701
  23. NOVALGIN (METAMIZOLE SODIUM) SOLUTION FOR INJECTION [Suspect]
     Indication: PYREXIA
     Dosage: 1 G, 1X/DAY, INTRAVENOUS; 0.5 G, 1X/DAY, INTRAVENOUS
     Route: 042
     Dates: start: 20060711, end: 20060711
  24. LASIX [Suspect]
     Indication: POLYURIA
     Dosage: 40 MG, 1X/DAY, ORAL
     Route: 048
     Dates: start: 20060704, end: 20060706
  25. VANCOMYCIN [Suspect]
     Indication: BACTERAEMIA
     Dosage: 1 G, 2X/DAY, INTRAVENOUS
     Route: 042
     Dates: start: 20060706, end: 20060711
  26. GENTAMICIN [Suspect]
     Indication: BACTERAEMIA
     Dosage: 240, 1X/DAY, INTRAVENOUS
     Route: 042
     Dates: start: 20060711
  27. DIFLUCAN [Concomitant]

REACTIONS (10)
  - BACTERAEMIA [None]
  - CYSTITIS [None]
  - DIABETES MELLITUS [None]
  - HYPERTENSION [None]
  - HYPERTHYROIDISM [None]
  - HYPOKALAEMIA [None]
  - PYONEPHROSIS [None]
  - STEVENS-JOHNSON SYNDROME [None]
  - SYSTEMIC CANDIDA [None]
  - URINARY TRACT INFECTION [None]
